FAERS Safety Report 5051995-7 (Version None)
Quarter: 2006Q3

REPORT INFORMATION
  Report Type: 
  Country: None (occurrence: None)
  Receive Date: 20060711
  Receipt Date: 20060622
  Transmission Date: 20061208
  Serious: Yes (Other)
  Sender: FDA-Public Use
  Company Number: 2736

PATIENT
  Age: 25 Year
  Sex: Female

DRUGS (1)
  1. AMNESTEEM (ISOTRETINOIN), 40MG CAPSULESM MYLAN [Suspect]
     Indication: ACNE
     Dosage: 40MG, QD, PO
     Route: 048
     Dates: end: 20060418

REACTIONS (2)
  - CONDITION AGGRAVATED [None]
  - SYSTEMIC LUPUS ERYTHEMATOSUS [None]
